FAERS Safety Report 15322933 (Version 1)
Quarter: 2018Q3

REPORT INFORMATION
  Report Type: Spontaneous
  Country: DE (occurrence: DE)
  Receive Date: 20180827
  Receipt Date: 20180827
  Transmission Date: 20181010
  Serious: Yes (Death, Life-Threatening)
  Sender: FDA-Public Use
  Company Number: DE-TEVA-2018-DE-947796

PATIENT
  Age: 92 Year
  Sex: Male

DRUGS (12)
  1. ALLOPURINOL. [Concomitant]
     Active Substance: ALLOPURINOL
     Indication: GOUT
     Dosage: 150 MILLIGRAM DAILY; FOR MONTHS
     Route: 048
     Dates: end: 20180105
  2. AMLODIPIN [Concomitant]
     Active Substance: AMLODIPINE BESYLATE
     Dosage: 5 MILLIGRAM DAILY; FOR MONTHS
     Route: 048
     Dates: end: 20180105
  3. TAMSULOSIN [Concomitant]
     Active Substance: TAMSULOSIN
     Dosage: .4 MILLIGRAM DAILY; FOR MONTHS
     Route: 048
     Dates: end: 20180105
  4. RISPERIDON [Suspect]
     Active Substance: RISPERIDONE
     Dosage: 2 MILLIGRAM DAILY;
     Route: 048
     Dates: start: 20171217, end: 20180102
  5. RISPERIDON [Suspect]
     Active Substance: RISPERIDONE
     Route: 048
     Dates: start: 20171215, end: 20171216
  6. PANTOPRAZOL [Concomitant]
     Active Substance: PANTOPRAZOLE SODIUM
     Dosage: 40 MILLIGRAM DAILY; FOR MONTHS
     Route: 048
     Dates: end: 20180105
  7. PRAVASTATIN. [Concomitant]
     Active Substance: PRAVASTATIN
     Indication: LIPIDS INCREASED
     Dosage: 20 MILLIGRAM DAILY; FOR WEEKS
     Route: 048
     Dates: end: 20180105
  8. RAMIPRIL. [Concomitant]
     Active Substance: RAMIPRIL
     Dosage: 10 MILLIGRAM DAILY; FOR MONTHS
     Route: 048
     Dates: end: 20180105
  9. RISPERIDON [Suspect]
     Active Substance: RISPERIDONE
     Route: 048
     Dates: start: 20180103, end: 20180105
  10. ELIQUIS [Concomitant]
     Active Substance: APIXABAN
     Indication: ANTICOAGULANT THERAPY
     Dosage: 5 MILLIGRAM DAILY; FOR MONTHS
     Route: 048
     Dates: end: 20180105
  11. PIPAMPERON [Suspect]
     Active Substance: PIPAMPERONE HYDROCHLORIDE
     Dosage: 80 MILLIGRAM DAILY;
     Route: 065
     Dates: start: 20171215, end: 20180105
  12. TORASEMID [Concomitant]
     Active Substance: TORSEMIDE
     Indication: DIURETIC THERAPY
     Dosage: 5 MILLIGRAM DAILY;
     Route: 048
     Dates: start: 20180103, end: 20180105

REACTIONS (1)
  - Death [Fatal]

NARRATIVE: CASE EVENT DATE: 20180106
